FAERS Safety Report 10120143 (Version 1)
Quarter: 2014Q2

REPORT INFORMATION
  Report Type: Spontaneous
  Country: FR (occurrence: FR)
  Receive Date: 20140425
  Receipt Date: 20140425
  Transmission Date: 20141212
  Serious: Yes (Hospitalization)
  Sender: FDA-Public Use
  Company Number: FR-PFIZER INC-2014112178

PATIENT
  Age: 62 Year
  Sex: Male

DRUGS (9)
  1. NEURONTIN [Suspect]
     Dosage: UNK
     Dates: start: 201312, end: 201401
  2. INEXIUM [Concomitant]
     Dosage: UNK
     Dates: start: 201312
  3. OXYCONTIN [Concomitant]
     Dosage: UNK
     Dates: start: 201312
  4. AERIUS [Concomitant]
     Dosage: UNK
     Dates: start: 201312
  5. LAROXYL [Concomitant]
     Dosage: UNK
     Dates: start: 201312
  6. OXYNORM [Concomitant]
     Dosage: UNK
     Dates: start: 201312
  7. XANAX [Concomitant]
     Dosage: UNK
     Dates: start: 201312
  8. FORLAX [Concomitant]
     Dosage: UNK
     Dates: start: 201312
  9. LOVENOX [Concomitant]
     Dosage: UNK
     Dates: start: 201312

REACTIONS (1)
  - Allergic hepatitis [Recovered/Resolved]
